FAERS Safety Report 18400739 (Version 6)
Quarter: 2021Q1

REPORT INFORMATION
  Report Type: Report from Study
  Country: None (occurrence: CO)
  Receive Date: 20201019
  Receipt Date: 20210125
  Transmission Date: 20210419
  Serious: Yes (Hospitalization, Other)
  Sender: FDA-Public Use
  Company Number: CO-ABBVIE-20K-036-3613776-00

PATIENT
  Sex: Female
  Weight: 74 kg

DRUGS (3)
  1. HUMIRA [Suspect]
     Active Substance: ADALIMUMAB
     Indication: RHEUMATOID ARTHRITIS
     Route: 058
     Dates: end: 20200821
  2. HUMIRA [Suspect]
     Active Substance: ADALIMUMAB
     Indication: RHEUMATOID ARTHRITIS
     Route: 058
     Dates: start: 20090310
  3. HUMIRA [Suspect]
     Active Substance: ADALIMUMAB
     Route: 058

REACTIONS (22)
  - Biopsy site unspecified abnormal [Unknown]
  - Limb injury [Recovering/Resolving]
  - Inflammation [Recovered/Resolved]
  - Skin disorder [Unknown]
  - Finger deformity [Unknown]
  - Peripheral swelling [Recovering/Resolving]
  - Musculoskeletal disorder [Unknown]
  - Skin discolouration [Recovering/Resolving]
  - Pain in extremity [Recovering/Resolving]
  - Unevaluable event [Unknown]
  - Inflammation [Recovering/Resolving]
  - Limb discomfort [Recovering/Resolving]
  - Skin injury [Recovering/Resolving]
  - Dyspepsia [Recovering/Resolving]
  - Erythema [Recovering/Resolving]
  - Hand deformity [Recovering/Resolving]
  - Abdominal pain upper [Recovering/Resolving]
  - Purulent discharge [Recovering/Resolving]
  - Dermatitis [Recovering/Resolving]
  - Arthralgia [Recovering/Resolving]
  - Peripheral swelling [Recovered/Resolved]
  - Post procedural swelling [Unknown]

NARRATIVE: CASE EVENT DATE: 2019
